FAERS Safety Report 9170316 (Version 1)
Quarter: 2013Q1

REPORT INFORMATION
  Report Type: Spontaneous
  Country: FR (occurrence: None)
  Receive Date: 20130308
  Receipt Date: 20130308
  Transmission Date: 20140127
  Serious: Yes (Life-Threatening)
  Sender: FDA-Public Use
  Company Number: SYM-2013-01407

PATIENT
  Age: 19 Year
  Sex: Female

DRUGS (1)
  1. MONO TILDIEM [Suspect]
     Indication: PRODUCT USED FOR UNKNOWN INDICATION
     Route: 048
     Dates: start: 20130206, end: 20130206

REACTIONS (5)
  - Suicide attempt [None]
  - Toxicity to various agents [None]
  - Vomiting [None]
  - Atrioventricular block second degree [None]
  - Atrioventricular block first degree [None]
